FAERS Safety Report 18151446 (Version 1)
Quarter: 2020Q3

REPORT INFORMATION
  Report Type: Spontaneous
  Country: US (occurrence: US)
  Receive Date: 20200814
  Receipt Date: 20200814
  Transmission Date: 20201103
  Serious: Yes (Other)
  Sender: FDA-Public Use
  Company Number: US-HORIZON-VIM-0137-2020

PATIENT
  Sex: Female

DRUGS (5)
  1. PROTONIX [Concomitant]
     Active Substance: PANTOPRAZOLE SODIUM
  2. VIMOVO [Suspect]
     Active Substance: ESOMEPRAZOLE MAGNESIUM\NAPROXEN
     Indication: PAIN
     Dosage: 3 PILLS
  3. AMBIEN [Concomitant]
     Active Substance: ZOLPIDEM TARTRATE
  4. BENADRYL [Concomitant]
     Active Substance: DIPHENHYDRAMINE HYDROCHLORIDE
  5. NABUMETONE. [Concomitant]
     Active Substance: NABUMETONE

REACTIONS (5)
  - Depression [Unknown]
  - Liver injury [Unknown]
  - Vomiting [Unknown]
  - Suicidal ideation [Unknown]
  - Insomnia [Unknown]
